FAERS Safety Report 23112948 (Version 2)
Quarter: 2023Q4

REPORT INFORMATION
  Report Type: Report from Study
  Country: CA (occurrence: CA)
  Receive Date: 20231027
  Receipt Date: 20231031
  Transmission Date: 20240109
  Serious: Yes (Hospitalization)
  Sender: FDA-Public Use
  Company Number: CA-KOREA IPSEN Pharma-2022-24913

PATIENT
  Age: 74 Year
  Sex: Male
  Weight: 56.6 kg

DRUGS (13)
  1. LANREOTIDE ACETATE [Suspect]
     Active Substance: LANREOTIDE ACETATE
     Indication: Gastroenteropancreatic neuroendocrine tumour disease
     Dosage: 120 MG
     Route: 058
     Dates: start: 20211119, end: 2022
  2. LANREOTIDE ACETATE [Suspect]
     Active Substance: LANREOTIDE ACETATE
     Dosage: 120MG
     Route: 058
     Dates: start: 20221029
  3. SERTRALINE [Concomitant]
     Active Substance: SERTRALINE HYDROCHLORIDE
  4. ROSUVASTATIN [Concomitant]
     Active Substance: ROSUVASTATIN
  5. QUETIAPINE [Concomitant]
     Active Substance: QUETIAPINE
  6. OMEPRAZOLE [Concomitant]
     Active Substance: OMEPRAZOLE
  7. DICLOFENAC [Concomitant]
     Active Substance: DICLOFENAC
  8. ALLOPURINOL [Concomitant]
     Active Substance: ALLOPURINOL
  9. ACEBUTOLOL [Concomitant]
     Active Substance: ACEBUTOLOL
  10. CLONAZEPAM [Concomitant]
     Active Substance: CLONAZEPAM
  11. OXYCODONE [Concomitant]
     Active Substance: OXYCODONE
  12. FLUTICASONE [Concomitant]
     Active Substance: FLUTICASONE
  13. FORMOTEROL [Concomitant]
     Active Substance: FORMOTEROL

REACTIONS (22)
  - Fall [Unknown]
  - Altered state of consciousness [Recovered/Resolved]
  - Confusional state [Recovered/Resolved]
  - Hallucination [Unknown]
  - Paranoia [Unknown]
  - Vomiting [Unknown]
  - Fall [Unknown]
  - Disorientation [Recovered/Resolved]
  - Pain [Not Recovered/Not Resolved]
  - Mobility decreased [Recovering/Resolving]
  - Abdominal pain [Not Recovered/Not Resolved]
  - Back pain [Not Recovered/Not Resolved]
  - Back pain [Recovering/Resolving]
  - Splinter [Not Recovered/Not Resolved]
  - Fall [Unknown]
  - Musculoskeletal stiffness [Not Recovered/Not Resolved]
  - Mobility decreased [Not Recovered/Not Resolved]
  - Hypokinesia [Not Recovered/Not Resolved]
  - Pain [Not Recovered/Not Resolved]
  - Weight decreased [Not Recovered/Not Resolved]
  - Off label use [Unknown]
  - Lack of administration site rotation [Unknown]

NARRATIVE: CASE EVENT DATE: 20220101
